FAERS Safety Report 19089889 (Version 1)
Quarter: 2021Q2

REPORT INFORMATION
  Report Type: Spontaneous
  Country: FR (occurrence: FR)
  Receive Date: 20210404
  Receipt Date: 20210404
  Transmission Date: 20210717
  Serious: Yes (Hospitalization)
  Sender: FDA-Public Use
  Company Number: FR-TEVA-2021-FR-1896284

PATIENT
  Age: 77 Year
  Sex: Female

DRUGS (1)
  1. PREGABALINE [Suspect]
     Active Substance: PREGABALIN
     Indication: NEURALGIA
     Dosage: 50 MG
     Route: 048
     Dates: start: 202101, end: 20210203

REACTIONS (3)
  - Sleep apnoea syndrome [Recovering/Resolving]
  - Respiratory distress [Recovered/Resolved]
  - Dyspnoea [Recovering/Resolving]

NARRATIVE: CASE EVENT DATE: 20210125
